FAERS Safety Report 19300418 (Version 1)
Quarter: 2021Q2

REPORT INFORMATION
  Report Type: Spontaneous
  Country: US (occurrence: US)
  Receive Date: 20210525
  Receipt Date: 20210525
  Transmission Date: 20210717
  Serious: Yes (Hospitalization)
  Sender: FDA-Public Use
  Company Number: None

PATIENT
  Age: 14 Year
  Sex: Male
  Weight: 62.2 kg

DRUGS (4)
  1. HYDROCORTISONE. [Suspect]
     Active Substance: HYDROCORTISONE
     Dates: end: 20210503
  2. CYTARABINE. [Suspect]
     Active Substance: CYTARABINE
     Dates: end: 20210511
  3. METHOTREXATE. [Suspect]
     Active Substance: METHOTREXATE
     Dates: end: 20210503
  4. ETOPOSIDE (VP?16) [Suspect]
     Active Substance: ETOPOSIDE
     Dates: end: 20210510

REACTIONS (4)
  - Hypotension [None]
  - Epistaxis [None]
  - Septic shock [None]
  - Staphylococcus test positive [None]

NARRATIVE: CASE EVENT DATE: 20210519
